FAERS Safety Report 17018897 (Version 1)
Quarter: 2019Q4

REPORT INFORMATION
  Report Type: Spontaneous
  Country: US (occurrence: US)
  Receive Date: 20191112
  Receipt Date: 20191112
  Transmission Date: 20200122
  Serious: No
  Sender: FDA-Public Use
  Company Number: US-009507513-1910USA016122

PATIENT
  Sex: Female

DRUGS (2)
  1. EMEND [Suspect]
     Active Substance: APREPITANT
     Indication: PROPHYLAXIS OF NAUSEA AND VOMITING
     Dosage: FOURTH CYCLE, 150 MG EVERY 3 WEEKS
     Route: 042
     Dates: start: 201906
  2. TAXOTERE [Suspect]
     Active Substance: DOCETAXEL
     Dosage: FOURTH CYCLE, IN THE SAME LINE WITH EMEND
     Route: 042
     Dates: start: 201906

REACTIONS (2)
  - Vein disorder [Recovering/Resolving]
  - Infusion site pain [Recovering/Resolving]

NARRATIVE: CASE EVENT DATE: 201908
